FAERS Safety Report 5594351-5 (Version None)
Quarter: 2007Q4

REPORT INFORMATION
  Report Type: 
  Country: None (occurrence: None)
  Receive Date: 20071218
  Receipt Date: 20070206
  Transmission Date: 20080405
  Serious: Yes (Hospitalization, Other)
  Sender: FDA-Public Use
  Company Number: 2007007045

PATIENT
  Age: 50 Year
  Sex: Female

DRUGS (1)
  1. BEXTRA [Suspect]
     Dosage: 40 MG (20 MG, 2 IN 1 D)
     Dates: start: 20010101, end: 20040324

REACTIONS (2)
  - ANXIETY [None]
  - MYOCARDIAL INFARCTION [None]
